FAERS Safety Report 10303108 (Version 1)
Quarter: 2014Q3

REPORT INFORMATION
  Report Type: Spontaneous
  Country: US (occurrence: None)
  Receive Date: 20140710
  Receipt Date: 20140710
  Transmission Date: 20150326
  Serious: Yes (Death, Hospitalization)
  Sender: FDA-Public Use
  Company Number: UTC-045560

PATIENT
  Age: 62 Year
  Sex: Female
  Weight: 120 kg

DRUGS (2)
  1. LETAIRIS [Concomitant]
     Active Substance: AMBRISENTAN
  2. REMODULIN [Suspect]
     Active Substance: TREPROSTINIL
     Indication: PULMONARY ARTERIAL HYPERTENSION
     Route: 041
     Dates: start: 20130206

REACTIONS (3)
  - Renal failure [None]
  - Lung disorder [None]
  - Pulmonary hypertension [None]

NARRATIVE: CASE EVENT DATE: 20140217
